FAERS Safety Report 21407063 (Version 1)
Quarter: 2022Q4

REPORT INFORMATION
  Report Type: Spontaneous
  Country: US (occurrence: None)
  Receive Date: 20221003
  Receipt Date: 20221003
  Transmission Date: 20230113
  Serious: No
  Sender: FDA-Public Use
  Company Number: None

PATIENT
  Age: 19 Year
  Sex: Female
  Weight: 49.5 kg

DRUGS (1)
  1. CORTIZONE 10 [Suspect]
     Active Substance: HYDROCORTISONE
     Indication: Product used for unknown indication
     Dosage: OTHER QUANTITY : 0.25 TEASPOON(S);?
     Route: 048

REACTIONS (5)
  - Product label confusion [None]
  - Product dispensing error [None]
  - Product selection error [None]
  - Wrong product administered [None]
  - Taste disorder [None]
